FAERS Safety Report 5716252-1 (Version None)
Quarter: 2008Q2

REPORT INFORMATION
  Report Type: 
  Country: None (occurrence: None)
  Receive Date: 20080424
  Receipt Date: 20080417
  Transmission Date: 20081010
  Serious: Yes (Other)
  Sender: FDA-Public Use
  Company Number: A0723448A

PATIENT
  Age: 46 Year
  Sex: Female

DRUGS (7)
  1. LAMICTAL [Suspect]
     Indication: BIPOLAR DISORDER
     Dosage: 300MG PER DAY
     Route: 048
     Dates: start: 20061101
  2. WELLBUTRIN XL [Suspect]
     Indication: DRUG USE FOR UNKNOWN INDICATION
     Dosage: 300MG PER DAY
     Route: 048
  3. EFFEXOR XR [Concomitant]
  4. CRESTOR [Concomitant]
  5. METFORMIN HCL [Concomitant]
  6. SYNTHROID [Concomitant]
  7. NEURONTIN [Concomitant]

REACTIONS (2)
  - DYSKINESIA [None]
  - HYPONATRAEMIA [None]
